FAERS Safety Report 12167948 (Version 3)
Quarter: 2016Q2

REPORT INFORMATION
  Report Type: Spontaneous
  Country: US (occurrence: US)
  Receive Date: 20160310
  Receipt Date: 20160412
  Transmission Date: 20160815
  Serious: Yes (Hospitalization)
  Sender: FDA-Public Use
  Company Number: US-CELGENE-USA-2016026491

PATIENT
  Age: 87 Year
  Sex: Male
  Weight: 72.46 kg

DRUGS (4)
  1. REVLIMID [Suspect]
     Active Substance: LENALIDOMIDE
     Route: 048
     Dates: start: 20151108
  2. REVLIMID [Suspect]
     Active Substance: LENALIDOMIDE
     Indication: PLASMA CELL MYELOMA
     Route: 048
     Dates: start: 201307
  3. REVLIMID [Suspect]
     Active Substance: LENALIDOMIDE
     Route: 048
     Dates: start: 201509
  4. REVLIMID [Suspect]
     Active Substance: LENALIDOMIDE
     Route: 048
     Dates: start: 20151008

REACTIONS (6)
  - Fall [Unknown]
  - Plasma cell myeloma [Unknown]
  - Asthenia [Unknown]
  - Pain [Unknown]
  - Peripheral swelling [Unknown]
  - Incontinence [Unknown]

NARRATIVE: CASE EVENT DATE: 201602
